FAERS Safety Report 6047032-8 (Version None)
Quarter: 2009Q1

REPORT INFORMATION
  Report Type: 
  Country: None (occurrence: None)
  Receive Date: 20090122
  Receipt Date: 20090113
  Transmission Date: 20090719
  Serious: Yes (Hospitalization)
  Sender: FDA-Public Use
  Company Number: US-GILEAD-2009-0019822

PATIENT
  Sex: Male
  Weight: 70.098 kg

DRUGS (10)
  1. VIREAD [Suspect]
     Route: 048
     Dates: start: 20050216
  2. MARAVIROC [Suspect]
     Indication: HIV INFECTION
     Route: 048
     Dates: start: 20050216
  3. COMBIVIR [Suspect]
     Route: 048
     Dates: start: 20050216
  4. BACTRIM [Concomitant]
     Dates: start: 19940501
  5. VALACYCLOVIR HCL [Concomitant]
     Dates: start: 20010926
  6. ALENDRONATE SODIUM [Concomitant]
     Dates: start: 20040414
  7. PAROXETINE HCL [Concomitant]
     Dates: start: 20000201
  8. RAMIPRIL [Concomitant]
     Dates: start: 20081009
  9. NULYTELY [Concomitant]
  10. ENFUVIRTIDE [Concomitant]
     Indication: HIV INFECTION
     Dates: start: 20050216

REACTIONS (1)
  - NEUROPATHIC ULCER [None]
